FAERS Safety Report 25755393 (Version 1)
Quarter: 2025Q3

REPORT INFORMATION
  Report Type: Spontaneous
  Country: US (occurrence: US)
  Receive Date: 20250903
  Receipt Date: 20250903
  Transmission Date: 20251020
  Serious: No
  Sender: MALLINCKRODT
  Company Number: US-MALLINCKRODT-MNK202505236

PATIENT
  Age: 52 Year
  Sex: Female

DRUGS (14)
  1. CORTICOTROPIN [Suspect]
     Active Substance: CORTICOTROPIN
     Indication: Multiple sclerosis
     Dosage: 80 UNITS
     Route: 058
     Dates: start: 20250819
  2. CALCIUM [Concomitant]
     Active Substance: CALCIUM
  3. COLACE [Concomitant]
     Active Substance: DOCUSATE SODIUM
  4. VITAMINS NOS [Concomitant]
     Active Substance: VITAMINS
  5. CYANOCOBALAMIN [Concomitant]
     Active Substance: CYANOCOBALAMIN
  6. CHOLECALCIFEROL [Concomitant]
     Active Substance: CHOLECALCIFEROL
  7. DIAZEPAM [Concomitant]
     Active Substance: DIAZEPAM
  8. GABAPENTIN [Concomitant]
     Active Substance: GABAPENTIN
  9. KESIMPTA [Concomitant]
     Active Substance: OFATUMUMAB
     Route: 058
  10. LAMOTRIGINE [Concomitant]
     Active Substance: LAMOTRIGINE
  11. LURASIDONE [Concomitant]
     Active Substance: LURASIDONE
  12. ONDANSETRON [Concomitant]
     Active Substance: ONDANSETRON
  13. SEMAGLUTIDE [Concomitant]
     Active Substance: SEMAGLUTIDE
     Route: 058
  14. TRAZODONE HCL [Concomitant]
     Active Substance: TRAZODONE HYDROCHLORIDE

REACTIONS (4)
  - Dizziness [Not Recovered/Not Resolved]
  - Injection site urticaria [Not Recovered/Not Resolved]
  - Injection site discharge [Not Recovered/Not Resolved]
  - Fatigue [Not Recovered/Not Resolved]

NARRATIVE: CASE EVENT DATE: 20250801
